FAERS Safety Report 24831208 (Version 1)
Quarter: 2025Q1

REPORT INFORMATION
  Report Type: Report from Study
  Country: US (occurrence: US)
  Receive Date: 20250110
  Receipt Date: 20250110
  Transmission Date: 20250409
  Serious: Yes (Hospitalization, Other)
  Sender: TAKEDA
  Company Number: US-TAKEDA-2024TUS111034

PATIENT
  Age: 87 Year
  Sex: Female

DRUGS (1)
  1. PRUCALOPRIDE [Suspect]
     Active Substance: PRUCALOPRIDE
     Indication: Product used for unknown indication

REACTIONS (2)
  - Breast cancer [Unknown]
  - Product use issue [Unknown]

NARRATIVE: CASE EVENT DATE: 20241103
